FAERS Safety Report 16052439 (Version 1)
Quarter: 2019Q1

REPORT INFORMATION
  Report Type: Spontaneous
  Country: AU (occurrence: AU)
  Receive Date: 20190308
  Receipt Date: 20190308
  Transmission Date: 20190418
  Serious: Yes (Other)
  Sender: FDA-Public Use
  Company Number: AU-PFIZER INC-2019099249

PATIENT
  Age: 2 Year
  Sex: Female
  Weight: 13.4 kg

DRUGS (3)
  1. FLUDARABINE PHOSPHATE. [Suspect]
     Active Substance: FLUDARABINE PHOSPHATE
  2. BUSULFAN. [Suspect]
     Active Substance: BUSULFAN
  3. MELPHALAN. [Suspect]
     Active Substance: MELPHALAN

REACTIONS (3)
  - Neoplasm progression [Unknown]
  - Febrile neutropenia [Recovered/Resolved]
  - Bacterial infection [Recovered/Resolved]
